FAERS Safety Report 10357647 (Version 1)
Quarter: 2014Q3

REPORT INFORMATION
  Report Type: Spontaneous
  Country: US (occurrence: None)
  Receive Date: 20140730
  Receipt Date: 20140730
  Transmission Date: 20150326
  Serious: Yes (Hospitalization)
  Sender: FDA-Public Use
  Company Number: None

PATIENT
  Age: 38 Year
  Sex: Female
  Weight: 78.47 kg

DRUGS (1)
  1. LITHIUM [Suspect]
     Active Substance: LITHIUM CARBONATE
     Indication: BIPOLAR DISORDER
     Dosage: 2PILLS  ONCE DAILY  TAKEN BY MOUTH
     Route: 048

REACTIONS (2)
  - Hypothyroidism [None]
  - Weight increased [None]
